FAERS Safety Report 4580243-7 (Version None)
Quarter: 2005Q1

REPORT INFORMATION
  Report Type: 
  Country: None (occurrence: None)
  Receive Date: 20050214
  Receipt Date: 20041004
  Transmission Date: 20050727
  Serious: Yes (Other)
  Sender: FDA-Public Use
  Company Number: JP-GLAXOSMITHKLINE-B0347531A

PATIENT
  Age: 75 Year
  Sex: Female
  Weight: 55 kg

DRUGS (2)
  1. ZANTAC [Suspect]
     Indication: PREMEDICATION
     Dosage: 1UNIT PER DAY
     Route: 042
     Dates: start: 20040820, end: 20040820
  2. VENA [Concomitant]
     Indication: PREMEDICATION
     Dosage: 5UNIT PER DAY
     Route: 048
     Dates: start: 20040820, end: 20040820

REACTIONS (3)
  - CHEST DISCOMFORT [None]
  - DYSPNOEA [None]
  - OXYGEN SATURATION DECREASED [None]
